FAERS Safety Report 5698774-5 (Version None)
Quarter: 2008Q2

REPORT INFORMATION
  Report Type: 
  Country: None (occurrence: None)
  Receive Date: 20080404
  Receipt Date: 20080319
  Transmission Date: 20081010
  Serious: Yes (Other)
  Sender: FDA-Public Use
  Company Number: 8031115

PATIENT
  Age: 9 Year
  Sex: Male
  Weight: 45 kg

DRUGS (2)
  1. KEPPRA [Suspect]
     Dosage: 500 MG 3/D
  2. RISPERDAL [Suspect]
     Dosage: 0.2 ML 1/D
     Dates: start: 20080101, end: 20080101

REACTIONS (2)
  - APHASIA [None]
  - MUTISM [None]
